FAERS Safety Report 6299783-8 (Version None)
Quarter: 2009Q3

REPORT INFORMATION
  Report Type: 
  Country: None (occurrence: None)
  Receive Date: 20090806
  Receipt Date: 20090803
  Transmission Date: 20100115
  Serious: Yes (Other)
  Sender: FDA-Public Use
  Company Number: US-GENENTECH-270361

PATIENT
  Sex: Female

DRUGS (19)
  1. XOLAIR [Suspect]
     Indication: ASTHMA
     Dosage: 375 MG, Q2W
     Dates: end: 20081029
  2. TRAMADOL HCL [Concomitant]
     Indication: ASTHMA
  3. ALBUTEROL [Concomitant]
     Indication: ASTHMA
  4. ATROVENT [Concomitant]
     Indication: ASTHMA
  5. ALLEGRA [Concomitant]
     Indication: HYPERSENSITIVITY
  6. FLONASE [Concomitant]
     Indication: HYPERSENSITIVITY
  7. ZEGERID [Concomitant]
     Indication: GASTROOESOPHAGEAL REFLUX DISEASE
  8. COMBIVENT [Concomitant]
     Indication: ASTHMA
  9. ADVAIR HFA [Concomitant]
     Indication: ASTHMA
     Dosage: UNK
  10. SPIRIVA [Concomitant]
     Indication: ASTHMA
     Dosage: UNK
  11. ZANAFLEX [Concomitant]
     Indication: BACK PAIN
  12. LEVAQUIN [Concomitant]
     Indication: BRONCHITIS
  13. VITAMIN D [Concomitant]
     Indication: VITAMIN D DEFICIENCY
  14. MULTI-VITAMIN [Concomitant]
     Indication: DRUG USE FOR UNKNOWN INDICATION
  15. SYNTHROID [Concomitant]
     Indication: HYPOTHYROIDISM
  16. VICODIN [Concomitant]
     Indication: ARTHRALGIA
  17. VITAMIN TAB [Concomitant]
     Indication: DRUG USE FOR UNKNOWN INDICATION
  18. OMEPRAZOLE [Concomitant]
     Indication: ULCER
  19. FLEXERIL [Concomitant]
     Indication: BACK PAIN

REACTIONS (3)
  - CAESAREAN SECTION [None]
  - DRUG EXPOSURE DURING PREGNANCY [None]
  - FIBROMYALGIA [None]
